FAERS Safety Report 21914885 (Version 4)
Quarter: 2023Q1

REPORT INFORMATION
  Report Type: Report from Study
  Country: TR (occurrence: None)
  Receive Date: 20230126
  Receipt Date: 20230222
  Transmission Date: 20230417
  Serious: Yes (Death, Other)
  Sender: FDA-Public Use
  Company Number: TR-ROCHE-3250072

PATIENT
  Age: 61 Year
  Sex: Male
  Weight: 93 kg

DRUGS (24)
  1. ATEZOLIZUMAB [Suspect]
     Active Substance: ATEZOLIZUMAB
     Indication: Small cell lung cancer extensive stage
     Dosage: ON DAY 1 OF EACH 21-DAY CYCLE, DOSE LAST STUDY DRUG ADMIN PRIOR AE /SAE1200 MG, START DATE OF MOST R
     Route: 041
     Dates: start: 20220927
  2. LURBINECTEDIN [Suspect]
     Active Substance: LURBINECTEDIN
     Indication: Small cell lung cancer extensive stage
     Dosage: START DATE OF MOST RECENT DOSE OF STUDY DRUG PRIOR TO AE 06-JAN-2023 AT 6.56 MG
     Route: 042
     Dates: start: 20230106
  3. CARBOPLATIN [Suspect]
     Active Substance: CARBOPLATIN
     Indication: Small cell lung cancer extensive stage
     Dosage: ON DAY 1, DOSE LAST STUDY DRUG ADMIN PRIOR AE/SAE 675MG, START DATE OF MOST RECENT DOSE OF STUDY DRU
     Route: 042
     Dates: start: 20220927
  4. ETOPOSIDE [Suspect]
     Active Substance: ETOPOSIDE
     Indication: Small cell lung cancer extensive stage
     Dosage: DOSE LAST STUDY DRUG ADMIN PRIOR AE/SAE 210 MG, START DATE OF MOST RECENT DOSE OF STUDY DRUG PRIOR T
     Route: 065
     Dates: start: 20220927
  5. RIVAROXABAN [Concomitant]
     Active Substance: RIVAROXABAN
     Indication: Atrial fibrillation
     Dates: start: 20221020
  6. PROPAFENONE HYDROCHLORIDE [Concomitant]
     Active Substance: PROPAFENONE HYDROCHLORIDE
     Indication: Atrial fibrillation
     Dates: start: 20221020
  7. FILGRASTIM [Concomitant]
     Active Substance: FILGRASTIM
     Indication: Neutropenia
     Route: 058
     Dates: start: 20221112
  8. FILGRASTIM [Concomitant]
     Active Substance: FILGRASTIM
     Route: 058
     Dates: start: 20221203, end: 20221207
  9. METOCLOPRAMIDE [Concomitant]
     Active Substance: METOCLOPRAMIDE
     Indication: Nausea
     Dates: start: 20221129, end: 20221129
  10. DEXAMETHASONE SODIUM PHOSPHATE [Concomitant]
     Active Substance: DEXAMETHASONE SODIUM PHOSPHATE
     Indication: Nausea
     Dates: start: 20221130, end: 20221130
  11. DEXAMETHASONE SODIUM PHOSPHATE [Concomitant]
     Active Substance: DEXAMETHASONE SODIUM PHOSPHATE
     Dates: start: 20221201, end: 20221201
  12. GRANISETRON [Concomitant]
     Active Substance: GRANISETRON
     Indication: Nausea
     Dates: start: 20221130, end: 20221130
  13. GRANISETRON [Concomitant]
     Active Substance: GRANISETRON
     Dates: start: 20221201, end: 20221201
  14. ENOX (TURKEY) [Concomitant]
     Dates: start: 20221222, end: 20221222
  15. PROGAS [Concomitant]
     Dates: start: 20221222, end: 20230105
  16. PROGAS [Concomitant]
     Dates: start: 20221223
  17. PROGAS [Concomitant]
     Dates: start: 20221224
  18. PROGAS [Concomitant]
     Dates: start: 20221225
  19. PROGAS [Concomitant]
     Dates: start: 20221225
  20. XARELTO [Concomitant]
     Active Substance: RIVAROXABAN
     Dates: start: 20221124, end: 20230105
  21. COSMETICS [Concomitant]
     Active Substance: COSMETICS
     Indication: Dry skin
     Dosage: %4
     Dates: start: 20221225, end: 20230105
  22. GLUKOZA [Concomitant]
     Dosage: 150 MG/DL
  23. CIPRALEX [Concomitant]
     Active Substance: ESCITALOPRAM OXALATE
     Indication: Anxiety
     Dates: start: 20221231
  24. TD [Concomitant]
     Active Substance: CLOSTRIDIUM TETANI TOXOID ANTIGEN (FORMALDEHYDE INACTIVATED)\CORYNEBACTERIUM DIPHTHERIAE TOXOID ANTI
     Dates: start: 20230103, end: 20230103

REACTIONS (2)
  - Pneumonia [Recovered/Resolved]
  - Pneumonia [Fatal]

NARRATIVE: CASE EVENT DATE: 20221222
